FAERS Safety Report 5602630-8 (Version None)
Quarter: 2008Q1

REPORT INFORMATION
  Report Type: 
  Country: None (occurrence: None)
  Receive Date: 20080125
  Receipt Date: 20080118
  Transmission Date: 20080703
  Serious: Yes (Hospitalization)
  Sender: FDA-Public Use
  Company Number: CH-ROCHE-542342

PATIENT
  Age: 73 Year
  Sex: Male

DRUGS (10)
  1. TOREM [Suspect]
     Route: 048
     Dates: end: 20070617
  2. TOREM [Suspect]
     Route: 048
     Dates: start: 20070621
  3. ZESTRIL [Interacting]
     Route: 048
     Dates: end: 20070617
  4. ZESTRIL [Interacting]
     Route: 048
  5. BISOPROLOL FUMARATE [Concomitant]
     Route: 048
  6. MARCUMAR [Concomitant]
     Route: 048
  7. REQUIP [Concomitant]
     Indication: PARKINSON'S DISEASE
     Dosage: FORM: FILM COATED TABLET
     Route: 048
  8. SINEMET [Concomitant]
     Indication: PARKINSON'S DISEASE
     Route: 048
  9. ALLOPURINOL [Concomitant]
     Route: 048
  10. PRAVASTATIN [Concomitant]
     Route: 048
     Dates: end: 20070601

REACTIONS (2)
  - DRUG INTERACTION [None]
  - RENAL FAILURE ACUTE [None]
